FAERS Safety Report 6657328-4 (Version None)
Quarter: 2010Q1

REPORT INFORMATION
  Report Type: 
  Country: None (occurrence: None)
  Receive Date: 20100330
  Receipt Date: 20100325
  Transmission Date: 20100710
  Serious: Yes (Disabling)
  Sender: FDA-Public Use
  Company Number: NO-BRISTOL-MYERS SQUIBB COMPANY-15035629

PATIENT
  Age: 25 Year
  Sex: Male

DRUGS (3)
  1. CISPLATIN [Suspect]
     Indication: TESTIS CANCER
     Route: 042
  2. BLEOMYCIN [Suspect]
     Indication: TESTIS CANCER
     Route: 042
     Dates: start: 19951101, end: 19951201
  3. ONCOVIN [Suspect]
     Indication: TESTIS CANCER
     Route: 042

REACTIONS (18)
  - ABDOMINAL PAIN UPPER [None]
  - AMNESIA [None]
  - BALANCE DISORDER [None]
  - COUGH [None]
  - DISTURBANCE IN ATTENTION [None]
  - DIZZINESS [None]
  - EXTRASYSTOLES [None]
  - FATIGUE [None]
  - FEELING OF BODY TEMPERATURE CHANGE [None]
  - FLATULENCE [None]
  - HEADACHE [None]
  - MUSCLE SPASTICITY [None]
  - MYALGIA [None]
  - PULMONARY FUNCTION TEST DECREASED [None]
  - SINUSITIS [None]
  - SLEEP DISORDER [None]
  - TINNITUS [None]
  - WEIGHT INCREASED [None]
